FAERS Safety Report 7342965-4 (Version None)
Quarter: 2011Q1

REPORT INFORMATION
  Report Type: 
  Country: None (occurrence: None)
  Receive Date: 20110301
  Receipt Date: 20110214
  Transmission Date: 20110831
  Serious: Yes (Other)
  Sender: FDA-Public Use
  Company Number: AUR-APL-2011-00564

PATIENT
  Sex: Male

DRUGS (2)
  1. SIMVASTATIN [Suspect]
  2. CORDARDONE [Suspect]

REACTIONS (2)
  - MONOPARESIS [None]
  - RHABDOMYOLYSIS [None]
